FAERS Safety Report 18375162 (Version 1)
Quarter: 2020Q4

REPORT INFORMATION
  Report Type: Other
  Country: US (occurrence: US)
  Receive Date: 20201013
  Receipt Date: 20201013
  Transmission Date: 20210114
  Serious: Yes (Hospitalization)
  Sender: FDA-Public Use
  Company Number: US-DEXPHARM-20200880

PATIENT
  Age: 96 Year
  Sex: Female
  Weight: 45 kg

DRUGS (9)
  1. DONEPEZIL 5 MG NON DEXCEL PRODUCT [Suspect]
     Active Substance: DONEPEZIL
  2. DONEPEZIL 10 MG NON DEXCEL PRODUCT [Interacting]
     Active Substance: DONEPEZIL
  3. ATORVASTATIN [Concomitant]
     Active Substance: ATORVASTATIN
     Dosage: NIGHTLY
  4. DONEPEZIL 10 MG NON DEXCEL PRODUCT [Interacting]
     Active Substance: DONEPEZIL
  5. METOPROLOL SUCCINATE. [Interacting]
     Active Substance: METOPROLOL SUCCINATE
     Dosage: NIGHTLY
  6. ASPIRIN. [Concomitant]
     Active Substance: ASPIRIN
     Dosage: DAILY
  7. METOPROLOL SUCCINATE. [Interacting]
     Active Substance: METOPROLOL SUCCINATE
     Dosage: NIGHTLY
  8. ESOMEPRAZOLE. [Concomitant]
     Active Substance: ESOMEPRAZOLE MAGNESIUM
     Dosage: DAILY
  9. DONEPEZIL. [Concomitant]
     Active Substance: DONEPEZIL

REACTIONS (7)
  - Drug interaction [Recovered/Resolved]
  - Somnolence [Recovered/Resolved]
  - Gait inability [Recovered/Resolved]
  - Hyporesponsive to stimuli [Recovered/Resolved]
  - Carbon dioxide decreased [Recovered/Resolved]
  - Toxicity to various agents [Recovered/Resolved]
  - Abdominal discomfort [Recovered/Resolved]
